FAERS Safety Report 6046732-3 (Version None)
Quarter: 2009Q1

REPORT INFORMATION
  Report Type: 
  Country: None (occurrence: None)
  Receive Date: 20090122
  Receipt Date: 20090113
  Transmission Date: 20090719
  Serious: Yes (Hospitalization)
  Sender: FDA-Public Use
  Company Number: FR-PFIZER INC-2009156963

PATIENT

DRUGS (13)
  1. ZITHROMAX [Suspect]
     Indication: BRONCHIAL OBSTRUCTION
     Dosage: 250 MG, 1X/DAY
     Route: 048
     Dates: start: 20081016, end: 20081027
  2. CIPROFLOXACIN HYDROCHLORIDE [Suspect]
     Indication: BRONCHIAL OBSTRUCTION
     Route: 048
     Dates: start: 20081011, end: 20081013
  3. LANTUS [Suspect]
     Indication: GLUCOSE TOLERANCE IMPAIRED
     Route: 058
     Dates: start: 20081008, end: 20081024
  4. INSULIN DETEMIR [Concomitant]
  5. NOVORAPID [Concomitant]
     Dates: start: 20081028
  6. ALLOPURINOL [Concomitant]
  7. ATARAX [Concomitant]
  8. OMEPRAZOLE [Concomitant]
  9. LEXOMIL [Concomitant]
  10. PULMICORT-100 [Concomitant]
     Dates: start: 20081028
  11. BUDESONIDE [Concomitant]
  12. FLUINDIONE [Concomitant]
     Dates: start: 20081028
  13. HEPARIN CALCIUM [Concomitant]
     Dates: start: 20081028

REACTIONS (2)
  - ACUTE GENERALISED EXANTHEMATOUS PUSTULOSIS [None]
  - RASH [None]
